FAERS Safety Report 10374778 (Version 1)
Quarter: 2014Q1

REPORT INFORMATION
  Report Type: Spontaneous
  Country: US (occurrence: None)
  Receive Date: 20140306
  Receipt Date: 20140306
  Transmission Date: 20141002
  Serious: Yes (Hospitalization)
  Sender: FDA-Public Use
  Company Number: 163-21880-13122007

PATIENT
  Age: 81 Year
  Sex: Male
  Weight: 68.04 kg

DRUGS (6)
  1. REVLIMID [Suspect]
     Indication: WALDENSTROM^S MACROGLOBULINAEMIA
     Route: 048
     Dates: start: 20110926
  2. NORVASC (AMLODIPINE BESILATE) [Concomitant]
  3. METOPROLOL [Concomitant]
  4. ASPIRIN [Concomitant]
  5. LEVAQUIN (LEVOFLOXACIN) [Concomitant]
  6. LASIX (FUROSEMIDE) [Concomitant]

REACTIONS (1)
  - Pneumonia [None]
